FAERS Safety Report 4314700-5 (Version None)
Quarter: 2004Q1

REPORT INFORMATION
  Report Type: 
  Country: None (occurrence: None)
  Receive Date: 20040310
  Receipt Date: 20040301
  Transmission Date: 20041129
  Serious: Yes (Hospitalization)
  Sender: FDA-Public Use
  Company Number: PHFR2004GB01251

PATIENT
  Sex: Female

DRUGS (3)
  1. LAMICTAL ^BURROUGHS WELLCOME^ [Suspect]
     Indication: CONVULSION
     Dosage: 50 MG, BID
     Route: 048
     Dates: start: 20030501, end: 20030701
  2. CARBAMAZEPINE [Suspect]
     Indication: CONVULSION
     Dosage: 200 MG, BID
     Route: 048
     Dates: start: 20030701
  3. PIZOTIFEN [Concomitant]
     Indication: HEADACHE
     Dosage: 1 MG/DAY
     Route: 048
     Dates: start: 20001101, end: 20030501

REACTIONS (3)
  - CHOLECYSTECTOMY [None]
  - CHOLECYSTITIS CHRONIC [None]
  - CHOLELITHIASIS [None]
